FAERS Safety Report 16657523 (Version 3)
Quarter: 2020Q2

REPORT INFORMATION
  Report Type: Spontaneous
  Country: US (occurrence: US)
  Receive Date: 20190801
  Receipt Date: 20200601
  Transmission Date: 20200713
  Serious: Yes (Other)
  Sender: FDA-Public Use
  Company Number: US-GILEAD-2019-0420448

PATIENT
  Age: 27 Year
  Sex: Male

DRUGS (33)
  1. STRIBILD [Concomitant]
     Active Substance: COBICISTAT\ELVITEGRAVIR\EMTRICITABINE\TENOFOVIR DISOPROXIL FUMARATE
     Indication: HIV INFECTION
     Dosage: 1 DOSAGE FORM (150-150-200-300 MG), QD
     Route: 048
  2. COMPLERA [Concomitant]
     Active Substance: EMTRICITABINE\RILPIVIRINE HYDROCHLORIDE\TENOFOVIR DISOPROXIL FUMARATE
     Indication: HIV INFECTION
     Dosage: 1 DOSAGE FORM (200-25-300 MG), QD
     Route: 048
  3. GENVOYA [Concomitant]
     Active Substance: COBICISTAT\ELVITEGRAVIR\EMTRICITABINE\TENOFOVIR ALAFENAMIDE FUMARATE
     Indication: HIV INFECTION
     Dosage: 1 DOSAGE FORM (200-150-150-10 MG), QD
     Route: 048
     Dates: end: 201901
  4. TRIAMCINOLONE [Concomitant]
     Active Substance: TRIAMCINOLONE
  5. AMLODIPINE BESYLATE. [Concomitant]
     Active Substance: AMLODIPINE BESYLATE
  6. ATRIPLA [Suspect]
     Active Substance: EFAVIRENZ\EMTRICITABINE\TENOFOVIR DISOPROXIL FUMARATE
     Indication: HIV INFECTION
     Dosage: UNK
     Route: 048
     Dates: start: 201301, end: 201501
  7. AZITHROMYCIN ANHYDROUS. [Concomitant]
     Active Substance: AZITHROMYCIN ANHYDROUS
  8. LORATADINE. [Concomitant]
     Active Substance: LORATADINE
  9. CALCITRIOL. [Concomitant]
     Active Substance: CALCITRIOL
  10. TRUVADA [Suspect]
     Active Substance: EMTRICITABINE\TENOFOVIR DISOPROXIL FUMARATE
     Indication: HIV INFECTION
     Dosage: 1 DOSAGE FORM (200-300 MG), QD
     Route: 048
     Dates: start: 201101, end: 201301
  11. DIPHENHYDRAMINE. [Concomitant]
     Active Substance: DIPHENHYDRAMINE
  12. DOXYCYCLINE MONOHYDRATE [Concomitant]
     Active Substance: DOXYCYCLINE
  13. CLARITIN-D NOS [Concomitant]
     Active Substance: LORATADINE\PSEUDOEPHEDRINE SULFATE
  14. VALTREX [Concomitant]
     Active Substance: VALACYCLOVIR HYDROCHLORIDE
  15. CLOTRIMAZOLE / BETAMETH [Concomitant]
     Active Substance: BETAMETHASONE DIPROPIONATE\CLOTRIMAZOLE
  16. PREDNISONE. [Concomitant]
     Active Substance: PREDNISONE
  17. MUPIROCIN. [Concomitant]
     Active Substance: MUPIROCIN
  18. NICOTINE. [Concomitant]
     Active Substance: NICOTINE
  19. MOMETASONE FUROATE. [Concomitant]
     Active Substance: MOMETASONE FUROATE
  20. FOLIC ACID. [Concomitant]
     Active Substance: FOLIC ACID
  21. EPIVIR [Concomitant]
     Active Substance: LAMIVUDINE
  22. CLOBETASOL PROPIONATE. [Concomitant]
     Active Substance: CLOBETASOL PROPIONATE
  23. VIRAMUNE XR [Concomitant]
     Active Substance: NEVIRAPINE
  24. AMOXICILLIN. [Concomitant]
     Active Substance: AMOXICILLIN
  25. ROCEPHIN [Concomitant]
     Active Substance: CEFTRIAXONE SODIUM
  26. CARVEDILOL. [Concomitant]
     Active Substance: CARVEDILOL
  27. CLINDAMYCIN. [Concomitant]
     Active Substance: CLINDAMYCIN
  28. JULUCA [Concomitant]
     Active Substance: DOLUTEGRAVIR SODIUM\RILPIVIRINE HYDROCHLORIDE
  29. SEVELAMER CARBONATE. [Concomitant]
     Active Substance: SEVELAMER CARBONATE
  30. FLUTICASONE. [Concomitant]
     Active Substance: FLUTICASONE
  31. NASONEX [Concomitant]
     Active Substance: MOMETASONE FUROATE
  32. ACETAMINOPHEN. [Concomitant]
     Active Substance: ACETAMINOPHEN
  33. NIFEDIPINE. [Concomitant]
     Active Substance: NIFEDIPINE

REACTIONS (7)
  - Chronic kidney disease [Not Recovered/Not Resolved]
  - Anxiety [Unknown]
  - Economic problem [Unknown]
  - Emotional distress [Unknown]
  - Renal failure [Unknown]
  - Anhedonia [Unknown]
  - Pain [Unknown]

NARRATIVE: CASE EVENT DATE: 201811
